FAERS Safety Report 5149215-8 (Version None)
Quarter: 2006Q4

REPORT INFORMATION
  Report Type: 
  Country: None (occurrence: None)
  Receive Date: 20061113
  Receipt Date: 20040723
  Transmission Date: 20070319
  Serious: No
  Sender: FDA-Public Use
  Company Number: 377663

PATIENT
  Age: 41 Year
  Sex: Male

DRUGS (3)
  1. COREG [Suspect]
     Dosage: 12.5MG TWICE PER DAY
     Route: 048
  2. VASOTEC [Concomitant]
  3. ASPIRIN [Concomitant]

REACTIONS (6)
  - CHEST PAIN [None]
  - DRUG INEFFECTIVE [None]
  - FATIGUE [None]
  - HEART RATE IRREGULAR [None]
  - PHARMACEUTICAL PRODUCT COMPLAINT [None]
  - SLEEP DISORDER [None]
